FAERS Safety Report 5797698-2 (Version None)
Quarter: 2008Q3

REPORT INFORMATION
  Report Type: 
  Country: None (occurrence: None)
  Receive Date: 20080702
  Receipt Date: 20080624
  Transmission Date: 20090109
  Serious: Yes (Death, Hospitalization)
  Sender: FDA-Public Use
  Company Number: US-ELI_LILLY_AND_COMPANY-US200804004852

PATIENT
  Sex: Male
  Weight: 108.3 kg

DRUGS (10)
  1. PEMETREXED [Suspect]
     Indication: NON-SMALL CELL LUNG CANCER
     Dosage: 500 MG/M2, Q 21 D
     Route: 042
     Dates: start: 20080116
  2. FOLIC ACID [Concomitant]
     Indication: SUPPLEMENTATION THERAPY
     Dates: start: 20080111
  3. VITAMIN B-12 [Concomitant]
     Indication: SUPPLEMENTATION THERAPY
     Dates: start: 20080111
  4. DEXAMETHASONE [Concomitant]
     Indication: PREMEDICATION
     Dates: start: 20080115
  5. COUMADIN [Concomitant]
     Indication: PROPHYLAXIS
     Dates: start: 20080111
  6. OXYCONTIN [Concomitant]
     Indication: PAIN
     Dates: start: 20080326
  7. OXYCODONE HCL [Concomitant]
     Indication: PAIN
     Dates: start: 20080403
  8. LANOXIN [Concomitant]
     Dates: end: 20080401
  9. OXYGEN [Concomitant]
     Dosage: 2 LITER, OTHER
     Route: 045
     Dates: end: 20080401
  10. OXYGEN [Concomitant]
     Dosage: 4 LITER, OTHER
     Route: 045
     Dates: start: 20080401

REACTIONS (3)
  - CONFUSIONAL STATE [None]
  - HYPOXIA [None]
  - MYOCARDIAL INFARCTION [None]
